FAERS Safety Report 9439751 (Version 2)
Quarter: 2013Q3

REPORT INFORMATION
  Report Type: Spontaneous
  Country: CA (occurrence: CA)
  Receive Date: 20130805
  Receipt Date: 20130805
  Transmission Date: 20140515
  Serious: Yes (Other)
  Sender: FDA-Public Use
  Company Number: CA-BAYER-2013-090025

PATIENT
  Age: 49 Year
  Sex: Female

DRUGS (3)
  1. MIRENA [Suspect]
     Indication: MENSTRUATION IRREGULAR
     Dosage: 20 MCG/24HR, CONT
     Route: 015
     Dates: start: 20130606, end: 201307
  2. TECTA [Concomitant]
     Indication: GASTRIC PH DECREASED
  3. OMEGA 3 [Concomitant]

REACTIONS (9)
  - Genital haemorrhage [None]
  - Weight increased [None]
  - Breast tenderness [None]
  - Abdominal pain lower [None]
  - Affective disorder [None]
  - Insomnia [None]
  - Anxiety [None]
  - Suicidal ideation [None]
  - Abdominal distension [None]
